FAERS Safety Report 12898252 (Version 1)
Quarter: 2016Q4

REPORT INFORMATION
  Report Type: Spontaneous
  Country: US (occurrence: US)
  Receive Date: 20161031
  Receipt Date: 20161031
  Transmission Date: 20170207
  Serious: No
  Sender: FDA-Public Use
  Company Number: US-PFIZER INC-3074852

PATIENT
  Age: 64 Year
  Sex: Male
  Weight: 116.1 kg

DRUGS (1)
  1. ROCURONIUM BROMIDE. [Suspect]
     Active Substance: ROCURONIUM BROMIDE
     Indication: KNEE ARTHROPLASTY
     Dosage: 80 MG, ONCE
     Route: 042
     Dates: start: 20151109, end: 20151109

REACTIONS (1)
  - Drug ineffective [Recovered/Resolved]

NARRATIVE: CASE EVENT DATE: 20151109
